FAERS Safety Report 6717972-2 (Version None)
Quarter: 2010Q2

REPORT INFORMATION
  Report Type: 
  Country: None (occurrence: None)
  Receive Date: 20100510
  Receipt Date: 20100430
  Transmission Date: 20101027
  Serious: Yes (Disabling)
  Sender: FDA-Public Use
  Company Number: PHHY2010US17902

PATIENT
  Sex: Female
  Weight: 55.2 kg

DRUGS (7)
  1. RECLAST [Suspect]
     Indication: OSTEOPOROSIS
     Dosage: 5 MG
     Route: 042
     Dates: start: 20090319
  2. RECLAST [Suspect]
     Indication: OSTEOPENIA
  3. EVISTA [Concomitant]
     Dosage: 60 MG, DAILY
  4. NEURONTIN [Concomitant]
     Route: 048
  5. METOPROLOL SUCCINATE [Concomitant]
  6. CALCIUM [Concomitant]
  7. VITAMIN D [Concomitant]

REACTIONS (4)
  - CARBON DIOXIDE INCREASED [None]
  - MIGRAINE [None]
  - RED BLOOD CELL SEDIMENTATION RATE INCREASED [None]
  - TRANSFERRIN SATURATION DECREASED [None]
